FAERS Safety Report 20324051 (Version 1)
Quarter: 2022Q1

REPORT INFORMATION
  Report Type: Spontaneous
  Country: US (occurrence: US)
  Receive Date: 20220111
  Receipt Date: 20220111
  Transmission Date: 20220423
  Serious: No
  Sender: FDA-Public Use
  Company Number: US-Ipsen Biopharmaceuticals, Inc.-2022-00263

PATIENT
  Sex: Male

DRUGS (1)
  1. DYSPORT [Suspect]
     Active Substance: ABOBOTULINUMTOXINA
     Indication: Hemiplegia
     Dosage: DOSE NOT REPORTED (EVERY 90 DAYS)
     Route: 065
     Dates: start: 20211029, end: 20211029

REACTIONS (2)
  - Muscle atrophy [Unknown]
  - Injection site indentation [Unknown]
